FAERS Safety Report 12162890 (Version 3)
Quarter: 2016Q2

REPORT INFORMATION
  Report Type: Other
  Country: GB (occurrence: GB)
  Receive Date: 20160309
  Receipt Date: 20160405
  Transmission Date: 20160815
  Serious: Yes (Other)
  Sender: FDA-Public Use
  Company Number: GB-CIPLA LTD.-2016GB02106

PATIENT

DRUGS (2)
  1. RAMIPRIL. [Suspect]
     Active Substance: RAMIPRIL
     Indication: HYPERTENSION
     Dosage: 2.5 MG, QD
     Route: 048
     Dates: end: 201602
  2. OMEPRAZOLE. [Concomitant]
     Active Substance: OMEPRAZOLE
     Dosage: 20 MG, QD
     Route: 065

REACTIONS (6)
  - Swelling [Unknown]
  - Rash [Unknown]
  - Skin induration [Unknown]
  - Erythema [Unknown]
  - Angioedema [Unknown]
  - Lip swelling [Unknown]
